FAERS Safety Report 21110158 (Version 1)
Quarter: 2022Q3

REPORT INFORMATION
  Report Type: Spontaneous
  Country: US (occurrence: None)
  Receive Date: 20220720
  Receipt Date: 20220720
  Transmission Date: 20221027
  Serious: No
  Sender: FDA-Public Use
  Company Number: None

PATIENT
  Sex: Female

DRUGS (1)
  1. LENALIDOMIDE [Suspect]
     Active Substance: LENALIDOMIDE
     Indication: Plasma cell myeloma
     Dosage: FREQUENCY : DAILY;?
     Route: 048
     Dates: start: 20220421

REACTIONS (6)
  - Palmar-plantar erythrodysaesthesia syndrome [None]
  - Loss of personal independence in daily activities [None]
  - Nausea [None]
  - Vomiting [None]
  - Eating disorder [None]
  - Fluid intake reduced [None]
